FAERS Safety Report 4852374-5 (Version None)
Quarter: 2005Q4

REPORT INFORMATION
  Report Type: 
  Country: None (occurrence: None)
  Receive Date: 20051213
  Receipt Date: 20051201
  Transmission Date: 20060501
  Serious: Yes (Hospitalization)
  Sender: FDA-Public Use
  Company Number: PHNU2005DE03982

PATIENT
  Age: 64 Year
  Sex: Female

DRUGS (3)
  1. CRANOC (LICENSED, FUJISAWA DEUTSCHLAND) [Suspect]
     Indication: LIPID METABOLISM DISORDER
     Dosage: 40 MG, QD
     Dates: start: 20050721, end: 20050921
  2. CONCOR [Concomitant]
     Indication: HYPERTENSION
     Dosage: 0.5 DF, QD
  3. VIANI [Concomitant]
     Indication: ASTHMA
     Dosage: 1 DF, BID

REACTIONS (18)
  - BILE DUCT STONE [None]
  - BLOOD BILIRUBIN INCREASED [None]
  - BRONCHITIS ACUTE [None]
  - C-REACTIVE PROTEIN INCREASED [None]
  - CARBOHYDRATE ANTIGEN 19-9 INCREASED [None]
  - CHOLESTASIS [None]
  - DIARRHOEA [None]
  - GAMMA-GLUTAMYLTRANSFERASE INCREASED [None]
  - JAUNDICE [None]
  - MALAISE [None]
  - OCULAR ICTERUS [None]
  - RED BLOOD CELLS URINE POSITIVE [None]
  - RENAL CYST [None]
  - THROAT IRRITATION [None]
  - TONGUE COATED [None]
  - TRANSAMINASES INCREASED [None]
  - VOMITING [None]
  - WHITE BLOOD CELLS URINE POSITIVE [None]
